FAERS Safety Report 8123325-5 (Version None)
Quarter: 2012Q1

REPORT INFORMATION
  Report Type: 
  Country: None (occurrence: None)
  Receive Date: 20120208
  Receipt Date: 20120125
  Transmission Date: 20120608
  Serious: Yes (Hospitalization, Other)
  Sender: FDA-Public Use
  Company Number: US-ROCHE-783591

PATIENT
  Sex: Male
  Weight: 81.72 kg

DRUGS (8)
  1. ACCUTANE [Suspect]
     Indication: ACNE
     Route: 065
     Dates: start: 19920301, end: 19920901
  2. PREDNISONE [Concomitant]
     Indication: PRODUCT USED FOR UNKNOWN INDICATION
  3. HUMIBID [Concomitant]
     Indication: PRODUCT USED FOR UNKNOWN INDICATION
  4. VERAPAMIL [Concomitant]
     Indication: PRODUCT USED FOR UNKNOWN INDICATION
  5. DIPENTUM [Concomitant]
     Indication: PRODUCT USED FOR UNKNOWN INDICATION
  6. PRO-BANTHINE [Concomitant]
     Indication: PRODUCT USED FOR UNKNOWN INDICATION
  7. SINEQUAN [Concomitant]
     Indication: PRODUCT USED FOR UNKNOWN INDICATION
  8. LOZOL [Concomitant]
     Indication: PRODUCT USED FOR UNKNOWN INDICATION

REACTIONS (9)
  - INFLAMMATORY BOWEL DISEASE [None]
  - PROCTITIS ULCERATIVE [None]
  - STRESS [None]
  - HAEMORRHOIDS [None]
  - DEPRESSION [None]
  - ANAEMIA [None]
  - GASTROINTESTINAL DISORDER [None]
  - INTESTINAL OBSTRUCTION [None]
  - COLONIC POLYP [None]
